FAERS Safety Report 9081762 (Version 1)
Quarter: 2013Q1

REPORT INFORMATION
  Report Type: Report from Study
  Country: US (occurrence: US)
  Receive Date: 20130130
  Receipt Date: 20130130
  Transmission Date: 20140127
  Serious: No
  Sender: FDA-Public Use
  Company Number: US-ABBOTT-12P-163-0957597-00

PATIENT
  Age: 49 None
  Sex: Female
  Weight: 88.53 kg

DRUGS (14)
  1. HUMIRA 40 MG/0.8 ML PEN [Suspect]
     Indication: RHEUMATOID ARTHRITIS
     Route: 058
     Dates: start: 20120614
  2. BYETTA [Concomitant]
     Indication: DIABETES MELLITUS
  3. CANASA [Concomitant]
     Indication: COLITIS ULCERATIVE
  4. FIBER [Concomitant]
     Indication: COLITIS ULCERATIVE
  5. GLUMETZA [Concomitant]
     Indication: DIABETES MELLITUS
  6. LOVAZA [Concomitant]
     Indication: BLOOD TRIGLYCERIDES
  7. METOPROLOL [Concomitant]
     Indication: HEART RATE IRREGULAR
  8. NASOCORT [Concomitant]
     Indication: SEASONAL ALLERGY
  9. PLAQUENIL [Concomitant]
     Indication: RHEUMATOID ARTHRITIS
  10. PROVENTIL [Concomitant]
     Indication: ASTHMA
  11. SINGULAIR [Concomitant]
     Indication: SEASONAL ALLERGY
  12. SYNTHROID [Concomitant]
     Indication: THYROID DISORDER
  13. TRICOR [Concomitant]
     Indication: BLOOD TRIGLYCERIDES
  14. VITAMIN D [Concomitant]
     Indication: VITAMIN SUPPLEMENTATION

REACTIONS (7)
  - Sinusitis [Recovered/Resolved]
  - Viral infection [Recovered/Resolved]
  - Sneezing [Recovered/Resolved]
  - Throat irritation [Recovered/Resolved]
  - Oral herpes [Recovered/Resolved]
  - Lymphadenopathy [Recovered/Resolved]
  - Oropharyngeal pain [Recovered/Resolved]
